FAERS Safety Report 16845203 (Version 2)
Quarter: 2019Q3

REPORT INFORMATION
  Report Type: Spontaneous
  Country: US (occurrence: US)
  Receive Date: 20190924
  Receipt Date: 20190927
  Transmission Date: 20191005
  Serious: Yes (Other)
  Sender: FDA-Public Use
  Company Number: US-PFIZER INC-2019410547

PATIENT
  Age: 70 Year
  Sex: Female

DRUGS (1)
  1. TIKOSYN [Suspect]
     Active Substance: DOFETILIDE
     Dosage: UNK, 2X/DAY [7 AM AND 7 PM]

REACTIONS (3)
  - Cerebrovascular accident [Unknown]
  - Extra dose administered [Unknown]
  - Product dose omission [Unknown]
